FAERS Safety Report 7607039-3 (Version None)
Quarter: 2011Q3

REPORT INFORMATION
  Report Type: 
  Country: None (occurrence: None)
  Receive Date: 20110713
  Receipt Date: 20110630
  Transmission Date: 20111222
  Serious: Yes (Other)
  Sender: FDA-Public Use
  Company Number: US-JNJFOC-20110602134

PATIENT
  Sex: Male

DRUGS (3)
  1. REMICADE [Suspect]
     Indication: PSORIATIC ARTHROPATHY
     Route: 042
     Dates: end: 20110101
  2. HUMIRA [Suspect]
     Indication: PSORIATIC ARTHROPATHY
     Dosage: 40MG/0.8ML
     Route: 058
     Dates: start: 20101101, end: 20110401
  3. ANTIHYPERTENSIVES [Concomitant]
     Route: 065

REACTIONS (4)
  - PARAESTHESIA [None]
  - RENAL DISORDER [None]
  - RASH PRURITIC [None]
  - RENAL IMPAIRMENT [None]
